FAERS Safety Report 23787967 (Version 1)
Quarter: 2024Q2

REPORT INFORMATION
  Report Type: Spontaneous
  Country: FR (occurrence: FR)
  Receive Date: 20240426
  Receipt Date: 20240426
  Transmission Date: 20240716
  Serious: Yes (Hospitalization, Other)
  Sender: FDA-Public Use
  Company Number: None

PATIENT
  Age: 51 Year
  Sex: Male
  Weight: 91 kg

DRUGS (3)
  1. YERVOY [Suspect]
     Active Substance: IPILIMUMAB
     Indication: Malignant melanoma
     Dosage: 3 MG/KG EVERY 3 WEEKS
     Route: 042
     Dates: start: 20231121, end: 20240125
  2. OPDIVO [Suspect]
     Active Substance: NIVOLUMAB
     Indication: Malignant melanoma
     Dosage: 1 MG/KG EVERY 3 WEEKS FOR 4 TIMES THEN 480 MG EVERY 4 WEEKS
     Route: 042
     Dates: start: 20231121, end: 20240125
  3. OPDIVO [Suspect]
     Active Substance: NIVOLUMAB
     Route: 042

REACTIONS (3)
  - Autoimmune hepatitis [Recovered/Resolved]
  - Uveitis [Recovered/Resolved with Sequelae]
  - Autoimmune hypothyroidism [Recovering/Resolving]

NARRATIVE: CASE EVENT DATE: 20240124
